FAERS Safety Report 17605701 (Version 1)
Quarter: 2020Q1

REPORT INFORMATION
  Report Type: Spontaneous
  Country: JP (occurrence: JP)
  Receive Date: 20200331
  Receipt Date: 20200331
  Transmission Date: 20200409
  Serious: Yes (Hospitalization, Other)
  Sender: FDA-Public Use
  Company Number: JP-SA-2020SA078722

PATIENT
  Age: 2 Year
  Sex: Female

DRUGS (3)
  1. AMBROXOL HYDROCHLORIDE [Suspect]
     Active Substance: AMBROXOL HYDROCHLORIDE
     Indication: NASOPHARYNGITIS
     Dosage: UNK UNK, TID
     Route: 048
  2. TIPEPIDINE HIBENZATE [Suspect]
     Active Substance: TIPEPIDINE HIBENZATE
     Indication: NASOPHARYNGITIS
     Dosage: UNK
     Route: 048
  3. LEVOCETIRIZINE [Suspect]
     Active Substance: LEVOCETIRIZINE
     Indication: NASOPHARYNGITIS
     Dosage: UNK, TID
     Route: 048

REACTIONS (9)
  - Off label use [Unknown]
  - Rash [Recovering/Resolving]
  - Confusional state [Recovering/Resolving]
  - Product communication issue [Unknown]
  - Toxicity to various agents [Recovering/Resolving]
  - Abnormal behaviour [Recovering/Resolving]
  - Drug level increased [Unknown]
  - Product preparation issue [Unknown]
  - Altered state of consciousness [Recovered/Resolved]
